FAERS Safety Report 6962807-6 (Version None)
Quarter: 2010Q3

REPORT INFORMATION
  Report Type: 
  Country: None (occurrence: None)
  Receive Date: 20100823
  Receipt Date: 20100719
  Transmission Date: 20110219
  Serious: Yes (Hospitalization)
  Sender: FDA-Public Use
  Company Number: 015756

PATIENT
  Sex: Male

DRUGS (3)
  1. CIMZIA [Suspect]
     Dosage: (SUBCUTANEOUS) ; (400 MG 1X/2 WEEKS SUBCUTANEOUS)
     Route: 058
     Dates: start: 20100315, end: 20100101
  2. CIMZIA [Suspect]
     Dosage: (SUBCUTANEOUS) ; (400 MG 1X/2 WEEKS SUBCUTANEOUS)
     Route: 058
     Dates: start: 20100607
  3. PREDNISONE [Concomitant]

REACTIONS (1)
  - ABDOMINAL PAIN LOWER [None]
